FAERS Safety Report 7075923-8 (Version None)
Quarter: 2010Q4

REPORT INFORMATION
  Report Type: 
  Country: None (occurrence: None)
  Receive Date: 20101101
  Receipt Date: 20101021
  Transmission Date: 20110411
  Serious: No
  Sender: FDA-Public Use
  Company Number: US-BIOGENIDEC-2010BI037202

PATIENT
  Age: 31 Year
  Sex: Female

DRUGS (3)
  1. TYSABRI [Suspect]
     Indication: MULTIPLE SCLEROSIS
     Route: 042
     Dates: start: 20080821
  2. TYSABRI [Suspect]
     Route: 042
     Dates: end: 20100701
  3. TYSABRI [Suspect]
     Route: 042
     Dates: start: 20100701

REACTIONS (3)
  - HEADACHE [None]
  - NEURALGIA [None]
  - PERONEAL NERVE PALSY [None]
